FAERS Safety Report 8974115 (Version 1)
Quarter: 2012Q4

REPORT INFORMATION
  Report Type: Spontaneous
  Country: US (occurrence: None)
  Receive Date: 20121217
  Receipt Date: 20121217
  Transmission Date: 20130627
  Serious: Yes (Hospitalization)
  Sender: FDA-Public Use
  Company Number: None

PATIENT
  Age: 64 Year
  Sex: Male
  Weight: 90.4 kg

DRUGS (9)
  1. DECITABINE [Suspect]
     Indication: MDS
     Route: 058
     Dates: start: 20100907, end: 20110730
  2. BENAZEPRIL [Concomitant]
  3. OMEPRAZZOLE [Concomitant]
  4. GLIMEPIRIDE [Concomitant]
  5. LEVAQUIN [Concomitant]
  6. METFORMIN [Concomitant]
  7. GLYBURIDE [Concomitant]
  8. LOTREL [Concomitant]
  9. ROSUVASTATION [Concomitant]

REACTIONS (2)
  - Blast cell count increased [None]
  - Biopsy bone marrow abnormal [None]
